FAERS Safety Report 9934564 (Version 1)
Quarter: 2014Q1

REPORT INFORMATION
  Report Type: Spontaneous
  Country: US (occurrence: US)
  Receive Date: 20140228
  Receipt Date: 20140228
  Transmission Date: 20141002
  Serious: No
  Sender: FDA-Public Use
  Company Number: US-ASTRAZENECA-2013SE72190

PATIENT
  Sex: Female

DRUGS (6)
  1. TOPROL XL [Suspect]
     Indication: HEART RATE
     Dosage: 50 MG IN AM AND 50 MG IN THE PM
     Route: 048
     Dates: start: 2007
  2. TOPROL XL [Suspect]
     Indication: VENTRICULAR TACHYCARDIA
     Dosage: 50 MG IN AM AND 50 MG IN THE PM
     Route: 048
     Dates: start: 2007
  3. TOPROL XL [Suspect]
     Indication: HEART RATE
     Dosage: 100 MG IN AM AND 50 MG IN THE PM
     Route: 048
  4. TOPROL XL [Suspect]
     Indication: VENTRICULAR TACHYCARDIA
     Dosage: 100 MG IN AM AND 50 MG IN THE PM
     Route: 048
  5. TOPROL XL [Suspect]
     Indication: HEART RATE
     Dosage: GENERIC MANUFACTURED BY WATSON
     Route: 048
     Dates: start: 20130815
  6. TOPROL XL [Suspect]
     Indication: VENTRICULAR TACHYCARDIA
     Dosage: GENERIC MANUFACTURED BY WATSON
     Route: 048
     Dates: start: 20130815

REACTIONS (4)
  - Heart rate increased [Recovered/Resolved]
  - Nausea [Unknown]
  - Dizziness [Unknown]
  - Palpitations [Not Recovered/Not Resolved]
